FAERS Safety Report 5154163-3 (Version None)
Quarter: 2006Q4

REPORT INFORMATION
  Report Type: 
  Country: None (occurrence: None)
  Receive Date: 20061120
  Receipt Date: 20061018
  Transmission Date: 20070319
  Serious: Yes (Other)
  Sender: FDA-Public Use
  Company Number: DE-AMGEN-UK197361

PATIENT
  Age: 38 Year
  Sex: Male
  Weight: 66 kg

DRUGS (6)
  1. MIMPARA [Suspect]
     Indication: DRUG USE FOR UNKNOWN INDICATION
     Route: 048
     Dates: start: 20060925
  2. FUROSEMIDE [Concomitant]
     Route: 048
  3. RAMIPRIL [Concomitant]
     Route: 048
  4. RENAGEL [Concomitant]
     Route: 048
  5. CALCIUM ACETATE [Concomitant]
     Route: 048
  6. ALBENDAZOLE [Concomitant]
     Route: 048

REACTIONS (2)
  - GAIT DISTURBANCE [None]
  - MYALGIA [None]
